FAERS Safety Report 26119016 (Version 1)
Quarter: 2025Q4

REPORT INFORMATION
  Report Type: Spontaneous
  Country: EU (occurrence: EU)
  Receive Date: 20251204
  Receipt Date: 20251204
  Transmission Date: 20260117
  Serious: Yes (Other)
  Sender: BOEHRINGER INGELHEIM
  Company Number: EU-BoehringerIngelheim-2025-BI-110643

PATIENT
  Age: 71 Year
  Sex: Female
  Weight: 51 kg

DRUGS (14)
  1. NINTEDANIB [Suspect]
     Active Substance: NINTEDANIB
     Indication: Systemic sclerosis pulmonary
     Dates: start: 202507
  2. NINTEDANIB [Suspect]
     Active Substance: NINTEDANIB
     Indication: Interstitial lung disease
  3. NINTEDANIB [Suspect]
     Active Substance: NINTEDANIB
     Indication: Interstitial lung disease
  4. EUTHYROX [Concomitant]
     Active Substance: LEVOTHYROXINE SODIUM
     Indication: Product used for unknown indication
     Dosage: 100?G
  5. PANTOPRAZOLE SODIUM [Concomitant]
     Active Substance: PANTOPRAZOLE SODIUM
     Indication: Product used for unknown indication
  6. NEBIVOLOL HYDROCHLORIDE [Concomitant]
     Active Substance: NEBIVOLOL HYDROCHLORIDE
     Indication: Product used for unknown indication
     Dosage: 0,5 -0 -0,5 (NEBIVOLOL)
  7. Nilmendo [Concomitant]
     Indication: Product used for unknown indication
     Dosage: NILMENDO 180 MG (BEMPEDOIC ACID)
  8. T-ASS [Concomitant]
     Indication: Product used for unknown indication
  9. Calcium Dura [Concomitant]
     Indication: Product used for unknown indication
     Dosage: AT NOON
  10. Mycofenolate: Myfenax [Concomitant]
     Indication: Product used for unknown indication
     Dosage: 2-0-2
  11. CELECOXIB [Concomitant]
     Active Substance: CELECOXIB
     Indication: Product used for unknown indication
  12. Ulcosan [Concomitant]
     Indication: Product used for unknown indication
     Dosage: (FAMOTIDIN)
  13. Ilomedin infusion [Concomitant]
     Indication: Product used for unknown indication
     Dosage: EVERY 2 WEEKS VIA RH
  14. MYCOPHENOLATE MOFETIL [Concomitant]
     Active Substance: MYCOPHENOLATE MOFETIL
     Indication: Product used for unknown indication

REACTIONS (6)
  - Respiratory failure [Unknown]
  - Lung diffusion test decreased [Unknown]
  - Interstitial lung disease [Unknown]
  - Productive cough [Unknown]
  - Sputum discoloured [Unknown]
  - Dyspnoea exertional [Unknown]
